FAERS Safety Report 16724610 (Version 1)
Quarter: 2019Q3

REPORT INFORMATION
  Report Type: Spontaneous
  Country: US (occurrence: US)
  Receive Date: 20190821
  Receipt Date: 20190821
  Transmission Date: 20191005
  Serious: No
  Sender: FDA-Public Use
  Company Number: US-PFIZER INC-2019353596

PATIENT
  Age: 66 Year
  Sex: Female
  Weight: 116 kg

DRUGS (6)
  1. VENLAFAXINE [Concomitant]
     Active Substance: VENLAFAXINE HYDROCHLORIDE
     Indication: HOT FLUSH
     Dosage: 37.5 MG, 1X/DAY
  2. AROMASIN [Suspect]
     Active Substance: EXEMESTANE
     Indication: BREAST CANCER
     Dosage: 25 MG, 1X/DAY
     Dates: start: 201906, end: 201907
  3. VITAMIN B12 [VITAMIN B12 NOS] [Concomitant]
     Active Substance: CYANOCOBALAMIN
     Dosage: UNK
  4. VITAMIN B3 [Concomitant]
     Active Substance: NIACIN
     Dosage: UNK
  5. HYDROCODONE/ACETAMINOPHEN [Concomitant]
     Active Substance: ACETAMINOPHEN\HYDROCODONE
     Indication: BACK PAIN
     Dosage: 5-325MG TABLET; HALF A TABLET IN THE MORNING AND A WHOLE AT NIGHT.
  6. LYRICA [Concomitant]
     Active Substance: PREGABALIN
     Indication: NEURALGIA
     Dosage: 50 MG, 2X/DAY (50MG CAPSULE ONCE IN THE MORNING AND ONCE AT NIGHT AT BEDTIME WITH PAIN MEDICINE)

REACTIONS (6)
  - Gait inability [Unknown]
  - Muscle spasms [Unknown]
  - Arthritis [Not Recovered/Not Resolved]
  - Joint stiffness [Unknown]
  - Diarrhoea [Unknown]
  - Musculoskeletal stiffness [Unknown]

NARRATIVE: CASE EVENT DATE: 2019
